FAERS Safety Report 19232837 (Version 1)
Quarter: 2021Q2

REPORT INFORMATION
  Report Type: Spontaneous
  Country: US (occurrence: US)
  Receive Date: 20210507
  Receipt Date: 20210507
  Transmission Date: 20210717
  Serious: No
  Sender: FDA-Public Use
  Company Number: US-ASTRAZENECA-2021A305915

PATIENT
  Age: 31252 Day
  Sex: Female
  Weight: 67.6 kg

DRUGS (4)
  1. BREZTRI AEROSPHERE [Suspect]
     Active Substance: BUDESONIDE\FORMOTEROL\GLYCOPYRRONIUM
     Indication: RESTRICTIVE PULMONARY DISEASE
     Dosage: 160 MCG?9 MCG? 4.8 MCG 2 PUFFS IN MORNING AND 2 PUFFS IN THE EVENING
     Route: 055
  2. SYMBICORT [Suspect]
     Active Substance: BUDESONIDE\FORMOTEROL FUMARATE DIHYDRATE
     Indication: RESTRICTIVE PULMONARY DISEASE
     Dosage: 160?4.5 MCG 2 PUFFS TWICE A DAY
     Route: 055
     Dates: start: 2017
  3. PREDNISONE. [Concomitant]
     Active Substance: PREDNISONE
     Indication: LUNG DISORDER
     Route: 048
     Dates: start: 2015
  4. ELIQUIS [Concomitant]
     Active Substance: APIXABAN
     Indication: PULMONARY EMBOLISM
     Route: 048
     Dates: start: 2017

REACTIONS (2)
  - Candida infection [Not Recovered/Not Resolved]
  - Tremor [Not Recovered/Not Resolved]

NARRATIVE: CASE EVENT DATE: 20210407
